FAERS Safety Report 7413172-1 (Version None)
Quarter: 2011Q2

REPORT INFORMATION
  Report Type: 
  Country: None (occurrence: None)
  Receive Date: 20110413
  Receipt Date: 20110408
  Transmission Date: 20111010
  Serious: Yes (Hospitalization)
  Sender: FDA-Public Use
  Company Number: BR-PFIZER INC-2011078851

PATIENT
  Age: 60 Year
  Sex: Male

DRUGS (2)
  1. MINOXIDIL [Suspect]
  2. MINOXIDIL [Suspect]

REACTIONS (1)
  - HAEMORRHAGE [None]
